FAERS Safety Report 9521848 (Version 3)
Quarter: 2014Q1

REPORT INFORMATION
  Report Type: Spontaneous
  Country: US (occurrence: US)
  Receive Date: 20130913
  Receipt Date: 20140320
  Transmission Date: 20141002
  Serious: Yes (Hospitalization)
  Sender: FDA-Public Use
  Company Number: US-JNJFOC-20130902011

PATIENT
  Age: 62 Year
  Sex: Female
  Weight: 120 kg

DRUGS (12)
  1. STELARA [Suspect]
     Indication: PSORIASIS
     Route: 058
     Dates: start: 20130813, end: 20130813
  2. TOPAMAX [Suspect]
     Indication: PRODUCT USED FOR UNKNOWN INDICATION
     Route: 048
  3. VALIUM [Concomitant]
     Route: 065
  4. MELOXICAM [Concomitant]
     Route: 065
  5. ZOLOFT [Concomitant]
     Route: 065
  6. SLAMA [Concomitant]
     Route: 065
  7. UNKNOWN MEDICATION [Concomitant]
     Route: 065
  8. CLOBETASOL [Concomitant]
     Indication: PSORIASIS
     Route: 065
     Dates: start: 20130820
  9. TOPICORTE [Concomitant]
     Indication: PSORIASIS
     Route: 065
     Dates: start: 20130827
  10. SOMA [Concomitant]
     Route: 065
  11. HCTZ [Concomitant]
     Route: 065
  12. MULTIVITAMINS [Concomitant]
     Route: 065

REACTIONS (8)
  - Pancreatitis acute [Recovering/Resolving]
  - Urinary tract infection [Unknown]
  - Liver function test abnormal [Recovering/Resolving]
  - Hypokalaemia [Unknown]
  - Pruritus [Unknown]
  - Contusion [Unknown]
  - Oedema peripheral [Unknown]
  - Dizziness [Unknown]
